FAERS Safety Report 6278708-5 (Version None)
Quarter: 2009Q3

REPORT INFORMATION
  Report Type: 
  Country: None (occurrence: None)
  Receive Date: 20090721
  Receipt Date: 20090716
  Transmission Date: 20100115
  Serious: Yes (Death, Congenital Anomaly)
  Sender: FDA-Public Use
  Company Number: 1000006572

PATIENT
  Sex: Female

DRUGS (2)
  1. CITALOPRAM HYDROBROMIDE [Suspect]
     Dosage: 20 MG (20 MG), TRANSPLACENTAL
     Route: 064
     Dates: start: 20080801, end: 20090417
  2. PRENANTAL VITAMIN (TABLETS) [Concomitant]

REACTIONS (4)
  - CAESAREAN SECTION [None]
  - CONGENITAL CENTRAL NERVOUS SYSTEM ANOMALY [None]
  - MATERNAL DRUGS AFFECTING FOETUS [None]
  - NEURAL TUBE DEFECT [None]
